FAERS Safety Report 4823339-4 (Version None)
Quarter: 2005Q4

REPORT INFORMATION
  Report Type: 
  Country: None (occurrence: None)
  Receive Date: 20051108
  Receipt Date: 20051108
  Transmission Date: 20060501
  Serious: Yes (Other)
  Sender: FDA-Public Use
  Company Number: None

PATIENT
  Sex: Female
  Weight: 50.8029 kg

DRUGS (1)
  1. LEVAQUIN [Suspect]
     Indication: SKIN INFECTION
     Dosage: 500 MG    DAILY   PO
     Route: 048

REACTIONS (16)
  - ALOPECIA [None]
  - ANXIETY [None]
  - ARTHRALGIA [None]
  - ARTHROPATHY [None]
  - ASTHENIA [None]
  - DYSPNOEA [None]
  - FATIGUE [None]
  - FIBROMYALGIA [None]
  - INSOMNIA [None]
  - MUSCLE TWITCHING [None]
  - NEUROLOGICAL SYMPTOM [None]
  - NEUROMYOPATHY [None]
  - PANIC ATTACK [None]
  - PARAESTHESIA [None]
  - PARALYSIS [None]
  - WEIGHT DECREASED [None]
